FAERS Safety Report 12354878 (Version 1)
Quarter: 2016Q2

REPORT INFORMATION
  Report Type: Spontaneous
  Country: US (occurrence: None)
  Receive Date: 20160510
  Receipt Date: 20160510
  Transmission Date: 20160815
  Serious: Yes (Hospitalization)
  Sender: FDA-Public Use
  Company Number: None

PATIENT
  Age: 53 Year
  Sex: Female
  Weight: 73.2 kg

DRUGS (1)
  1. DIVALPROEX [Suspect]
     Active Substance: DIVALPROEX SODIUM
     Indication: PANCREATITIS
     Route: 048
     Dates: start: 20091221, end: 20160417

REACTIONS (7)
  - Polyuria [None]
  - Polydipsia [None]
  - Acidosis [None]
  - Diabetic ketoacidosis [None]
  - Vision blurred [None]
  - Electrocardiogram T wave abnormal [None]
  - Pancreatitis [None]

NARRATIVE: CASE EVENT DATE: 20160417
